FAERS Safety Report 5062709-9 (Version None)
Quarter: 2006Q3

REPORT INFORMATION
  Report Type: 
  Country: None (occurrence: None)
  Receive Date: 20060725
  Receipt Date: 20060725
  Transmission Date: 20061208
  Serious: No
  Sender: FDA-Public Use
  Company Number: None

PATIENT
  Sex: Female
  Weight: 15.8759 kg

DRUGS (1)
  1. PULMICORT [Suspect]
     Indication: ASTHMA
     Dosage: .25 MG TWICE A DAY INHAL
     Route: 055
     Dates: start: 20060619, end: 20060714

REACTIONS (1)
  - PHOTOPHOBIA [None]
